FAERS Safety Report 20374471 (Version 1)
Quarter: 2022Q1

REPORT INFORMATION
  Report Type: Spontaneous
  Country: IT (occurrence: IT)
  Receive Date: 20220125
  Receipt Date: 20220125
  Transmission Date: 20220423
  Serious: Yes (Other)
  Sender: FDA-Public Use
  Company Number: None

PATIENT
  Age: 68 Year
  Sex: Female
  Weight: 51 kg

DRUGS (2)
  1. KEYTRUDA [Suspect]
     Active Substance: PEMBROLIZUMAB
     Indication: Renal cancer stage IV
     Dosage: 200 MILLIGRAM, 1 CYCLICAL; LOT # WAS UNAVAILABLE
     Route: 042
     Dates: start: 20210812, end: 20211014
  2. INLYTA [Suspect]
     Active Substance: AXITINIB
     Indication: Renal cancer stage IV
     Dosage: 10 MILLIGRAM, QD; LOT NUMBER WAS UNAVAILABLE
     Route: 048
     Dates: start: 20210812, end: 20220111

REACTIONS (1)
  - Hypertransaminasaemia [Recovered/Resolved]

NARRATIVE: CASE EVENT DATE: 20211029
